FAERS Safety Report 10297516 (Version 1)
Quarter: 2014Q3

REPORT INFORMATION
  Report Type: Spontaneous
  Country: BR (occurrence: BR)
  Receive Date: 20140711
  Receipt Date: 20140711
  Transmission Date: 20150326
  Serious: Yes (Hospitalization)
  Sender: FDA-Public Use
  Company Number: BR-SA-2014SA089060

PATIENT
  Sex: Female
  Weight: 49 kg

DRUGS (4)
  1. DEVICE NOS [Suspect]
     Active Substance: DEVICE
     Indication: DEVICE THERAPY
  2. YASMIN [Concomitant]
     Active Substance: DROSPIRENONE\ETHINYL ESTRADIOL
     Indication: ORAL CONTRACEPTION
     Route: 048
  3. LANTUS [Suspect]
     Active Substance: INSULIN GLARGINE
     Indication: TYPE 1 DIABETES MELLITUS
     Route: 058
     Dates: start: 2002
  4. SOLOSTAR [Concomitant]
     Active Substance: DEVICE
     Dates: start: 201406

REACTIONS (5)
  - Asthenia [Recovered/Resolved]
  - Ketoacidosis [Recovered/Resolved]
  - Micturition urgency [Recovered/Resolved]
  - Vomiting [Recovered/Resolved]
  - Thirst [Recovered/Resolved]
